FAERS Safety Report 7118161-2 (Version None)
Quarter: 2010Q4

REPORT INFORMATION
  Report Type: 
  Country: None (occurrence: None)
  Receive Date: 20101118
  Receipt Date: 20101118
  Transmission Date: 20110411
  Serious: Yes (Other)
  Sender: FDA-Public Use
  Company Number: None

PATIENT
  Sex: Female
  Weight: 74.8435 kg

DRUGS (1)
  1. ZYRTEC [Suspect]
     Indication: SEASONAL ALLERGY
     Dosage: 10 MG DAILY PO
     Route: 048
     Dates: start: 20100301, end: 20101112

REACTIONS (2)
  - PAIN [None]
  - PRURITUS [None]
